FAERS Safety Report 19770266 (Version 3)
Quarter: 2021Q3

REPORT INFORMATION
  Report Type: Report from Study
  Country: None (occurrence: US)
  Receive Date: 20210831
  Receipt Date: 20210930
  Transmission Date: 20211014
  Serious: Yes (Hospitalization, Other)
  Sender: FDA-Public Use
  Company Number: US-ABBVIE-21K-163-4060009-00

PATIENT
  Age: 77 Year
  Sex: Male
  Weight: 88.53 kg

DRUGS (10)
  1. HUMIRA [Suspect]
     Active Substance: ADALIMUMAB
     Indication: PSORIASIS
     Dosage: CITRATE FREE
     Route: 058
     Dates: start: 20191001, end: 20210630
  2. MULTIVITAMINS [Concomitant]
     Active Substance: VITAMINS
     Indication: PRODUCT USED FOR UNKNOWN INDICATION
  3. PFIZER?BIONTECH COVID?19 VACCINE [Concomitant]
     Active Substance: TOZINAMERAN
     Route: 030
     Dates: start: 20210301, end: 20210301
  4. HUMIRA [Suspect]
     Active Substance: ADALIMUMAB
     Dosage: CITRATE FREE
     Route: 058
     Dates: start: 20200811, end: 20210323
  5. FLU VACCINE [Concomitant]
     Active Substance: INFLUENZA VIRUS VACCINE
     Indication: PROPHYLAXIS
  6. HUMIRA [Suspect]
     Active Substance: ADALIMUMAB
     Dosage: CITRATE FREE
     Route: 058
     Dates: start: 20210914
  7. PFIZER?BIONTECH COVID?19 VACCINE [Concomitant]
     Active Substance: TOZINAMERAN
     Indication: COVID-19 IMMUNISATION
     Route: 030
     Dates: start: 20210203, end: 20210203
  8. PFIZER?BIONTECH COVID?19 VACCINE [Concomitant]
     Active Substance: TOZINAMERAN
     Route: 030
     Dates: start: 20210927, end: 20210927
  9. SIMVASTATIN. [Concomitant]
     Active Substance: SIMVASTATIN
     Indication: BLOOD CHOLESTEROL INCREASED
  10. OXYCODONE [Concomitant]
     Active Substance: OXYCODONE
     Indication: PROCEDURAL PAIN
     Dates: start: 202007, end: 202007

REACTIONS (5)
  - Muscle injury [Recovering/Resolving]
  - Benign neoplasm of skin [Recovering/Resolving]
  - Gait disturbance [Recovering/Resolving]
  - Scar [Not Recovered/Not Resolved]
  - Back pain [Recovered/Resolved]

NARRATIVE: CASE EVENT DATE: 202103
